FAERS Safety Report 5536761-8 (Version None)
Quarter: 2007Q4

REPORT INFORMATION
  Report Type: 
  Country: None (occurrence: None)
  Receive Date: 20071206
  Receipt Date: 20070518
  Transmission Date: 20080405
  Serious: Yes (Hospitalization)
  Sender: FDA-Public Use
  Company Number: US-AMGEN-KDL220365

PATIENT
  Sex: Female
  Weight: 53.6 kg

DRUGS (8)
  1. ENBREL [Suspect]
     Indication: RHEUMATOID ARTHRITIS
     Route: 058
     Dates: start: 20070323, end: 20070405
  2. METHOTREXATE [Concomitant]
     Dates: start: 20060101
  3. PREMARIN [Concomitant]
  4. SYNTHROID [Concomitant]
  5. VYTORIN [Concomitant]
  6. FOLIC ACID [Concomitant]
     Dates: start: 20060101
  7. LOPRESSOR [Concomitant]
     Dates: start: 20070401
  8. ASPIRIN [Concomitant]

REACTIONS (1)
  - MYOCARDIAL INFARCTION [None]
